FAERS Safety Report 6717012-5 (Version None)
Quarter: 2010Q2

REPORT INFORMATION
  Report Type: 
  Country: None (occurrence: None)
  Receive Date: 20100506
  Receipt Date: 20100506
  Transmission Date: 20101027
  Serious: Yes (Other)
  Sender: FDA-Public Use
  Company Number: None

PATIENT
  Age: 67 Year
  Sex: Male
  Weight: 117.9352 kg

DRUGS (2)
  1. EXFORGE [Suspect]
     Indication: BLOOD PRESSURE
     Dosage: 5/320 MG 1-A DAY
  2. CRESTOR [Suspect]
     Dosage: 5-MG 1-A DAY

REACTIONS (6)
  - DYSPHONIA [None]
  - MUSCLE SPASMS [None]
  - MYALGIA [None]
  - OEDEMA MOUTH [None]
  - SWOLLEN TONGUE [None]
  - URTICARIA [None]
